FAERS Safety Report 8559738-7 (Version None)
Quarter: 2012Q3

REPORT INFORMATION
  Report Type: 
  Country: None (occurrence: None)
  Receive Date: 20120802
  Receipt Date: 20120730
  Transmission Date: 20120928
  Serious: Yes (Other)
  Sender: FDA-Public Use
  Company Number: BR-PFIZER INC-2012185663

PATIENT
  Age: 56 Year
  Sex: Female
  Weight: 64 kg

DRUGS (5)
  1. TOPIRAMATE [Concomitant]
     Indication: DEPRESSION
     Dosage: 25 MG, ONCE AT NIGHT
     Dates: start: 20120704
  2. VARENICLINE [Suspect]
     Indication: TOBACCO USER
     Dosage: UNK, 2X/DAY
     Route: 048
     Dates: start: 20120704
  3. ALPRAZOLAM [Concomitant]
     Indication: SLEEP DISORDER
     Dosage: 1 MG ONCE AT NIGHT
     Dates: start: 20120704
  4. TOPIRAMATE [Concomitant]
     Indication: HEADACHE
  5. VARENICLINE [Suspect]
     Indication: WITHDRAWAL SYNDROME

REACTIONS (10)
  - HEADACHE [None]
  - PYREXIA [None]
  - RETCHING [None]
  - TREMOR [None]
  - DECREASED APPETITE [None]
  - ABDOMINAL DISCOMFORT [None]
  - COLOUR BLINDNESS ACQUIRED [None]
  - NAUSEA [None]
  - ABNORMAL DREAMS [None]
  - HALLUCINATION [None]
